FAERS Safety Report 12803224 (Version 6)
Quarter: 2019Q4

REPORT INFORMATION
  Report Type: Spontaneous
  Country: US (occurrence: US)
  Receive Date: 20161003
  Receipt Date: 20191104
  Transmission Date: 20200122
  Serious: Yes (Hospitalization, Disabling, Other)
  Sender: FDA-Public Use
  Company Number: US-PFIZER INC-2016454706

PATIENT
  Age: 77 Year
  Sex: Female
  Weight: 82.1 kg

DRUGS (27)
  1. TIKOSYN [Suspect]
     Active Substance: DOFETILIDE
     Indication: ATRIAL FIBRILLATION
     Dosage: 250 UG, 2X/DAY
     Route: 048
     Dates: start: 2016
  2. ASPIRIN. [Concomitant]
     Active Substance: ASPIRIN
     Indication: ANTICOAGULANT THERAPY
     Dosage: 81 MG, 1X/DAY (EVERY EVENING)
     Route: 048
  3. CLONAZEPAM. [Concomitant]
     Active Substance: CLONAZEPAM
     Indication: SLEEP DISORDER
     Dosage: UNK, 1X/DAY (0.5 TO 1MG TABLET AT BEDTIME BY MOUTH)
     Route: 048
     Dates: start: 2016
  4. TORSEMIDE. [Concomitant]
     Active Substance: TORSEMIDE
     Indication: JOINT SWELLING
     Dosage: 10 MG, 1X/DAY
     Route: 048
     Dates: start: 2014
  5. VITAMIN D3 [Concomitant]
     Active Substance: CHOLECALCIFEROL
     Indication: OSTEOPENIA
     Dosage: UNK (AKES 1000 OR 2000, TAKES WHICHEVER DOSE IS ON SALE)
  6. CARTIA XT [Concomitant]
     Active Substance: DILTIAZEM HYDROCHLORIDE
     Indication: TACHYCARDIA
     Dosage: 120 MG, 1X/DAY
     Route: 048
  7. VITAMIN B6 [Concomitant]
     Active Substance: PYRIDOXINE HYDROCHLORIDE
     Dosage: UNK
  8. PRADAXA [Concomitant]
     Active Substance: DABIGATRAN ETEXILATE MESYLATE
     Indication: CEREBROVASCULAR ACCIDENT
  9. LISINOPRIL. [Concomitant]
     Active Substance: LISINOPRIL
     Indication: HYPERTENSION
     Dosage: 40 MG, 1X/DAY
     Route: 048
  10. TORSEMIDE. [Concomitant]
     Active Substance: TORSEMIDE
     Indication: OEDEMA
  11. PRADAXA [Concomitant]
     Active Substance: DABIGATRAN ETEXILATE MESYLATE
     Indication: ANTICOAGULANT THERAPY
     Dosage: 150 MG, 2X/DAY (MORNING AND EVENING )
     Route: 048
  12. VITAMIN B COMPLEX [Concomitant]
     Active Substance: CYANOCOBALAMIN\DEXPANTHENOL\NIACINAMIDE\PYRIDOXINE HYDROCHLORIDE\RIBOFLAVIN 5^-PHOSPHATE SODIUM\THIAMINE HYDROCHLORIDE\VITAMIN B COMPLEX
     Indication: RESTLESS LEGS SYNDROME
     Dosage: UNK
     Dates: start: 2014
  13. ELIQUIS [Concomitant]
     Active Substance: APIXABAN
     Dosage: 5 MG, 2X/DAY
  14. TIKOSYN [Suspect]
     Active Substance: DOFETILIDE
     Indication: ATRIAL FIBRILLATION
     Dosage: 250 UG, 2X/DAY
     Route: 048
     Dates: start: 2016
  15. TIKOSYN [Suspect]
     Active Substance: DOFETILIDE
     Indication: ATRIAL FIBRILLATION
     Dosage: 125 UG, 2X/DAY
     Route: 048
  16. TIKOSYN [Suspect]
     Active Substance: DOFETILIDE
     Indication: SUPRAVENTRICULAR TACHYCARDIA
  17. CARDIA [Concomitant]
     Active Substance: AJMALINE
     Indication: SUPRAVENTRICULAR TACHYCARDIA
     Dosage: 180 MG, 1X/DAY (180MG XT CAPSULE)
     Route: 048
     Dates: start: 2016
  18. VITAMIN C [Concomitant]
     Active Substance: ASCORBIC ACID
     Dosage: UNK UNK, 2X/DAY
  19. CRANBERRY. [Concomitant]
     Active Substance: CRANBERRY
     Dosage: UNK UNK, 2X/DAY
  20. LISINOPRIL. [Concomitant]
     Active Substance: LISINOPRIL
     Dosage: 60 MG, DAILY (40 MG IN THE MORNING AND HALF A TABLET WHICH SHOULD BE 20 MG IN THE NIGHT)
  21. LEVOTHYROXINE. [Concomitant]
     Active Substance: LEVOTHYROXINE
     Dosage: 0.150 MG, 1X/DAY (ONE TABLET EACH DAY, EVERY DAY IN THE MORNING)
     Route: 048
  22. FISH OIL [Concomitant]
     Active Substance: FISH OIL
     Dosage: UNK
  23. ESTRADIOL. [Concomitant]
     Active Substance: ESTRADIOL
     Dosage: UNK (THREE TIMES A WEEK )
  24. PRADAXA [Concomitant]
     Active Substance: DABIGATRAN ETEXILATE MESYLATE
     Indication: ATRIAL FIBRILLATION
  25. LEVOTHYROXINE. [Concomitant]
     Active Substance: LEVOTHYROXINE
     Indication: HYPOTHYROIDISM
     Dosage: 150 UG, 1X/DAY
     Route: 048
     Dates: start: 2014
  26. FISH OIL [Concomitant]
     Active Substance: FISH OIL
     Dosage: 1000 IU, 1X/DAY
     Route: 048
     Dates: start: 2005
  27. MAGNESIUM [Concomitant]
     Active Substance: MAGNESIUM
     Dosage: UNK

REACTIONS (23)
  - Sepsis [Recovered/Resolved]
  - Myalgia [Unknown]
  - Loss of consciousness [Recovering/Resolving]
  - Dyspnoea [Not Recovered/Not Resolved]
  - Chills [Unknown]
  - Cerebrovascular accident [Unknown]
  - Supraventricular tachycardia [Recovered/Resolved]
  - Thirst [Not Recovered/Not Resolved]
  - Dry throat [Unknown]
  - Blood potassium increased [Unknown]
  - Gait inability [Unknown]
  - Asthenia [Recovering/Resolving]
  - Seizure [Unknown]
  - Insomnia [Not Recovered/Not Resolved]
  - Vomiting [Recovered/Resolved]
  - Restlessness [Not Recovered/Not Resolved]
  - Pyrexia [Recovered/Resolved]
  - Restless legs syndrome [Not Recovered/Not Resolved]
  - Thyroid function test abnormal [Unknown]
  - Gait disturbance [Unknown]
  - Urinary tract infection [Unknown]
  - Rash [Not Recovered/Not Resolved]
  - Decreased appetite [Recovering/Resolving]

NARRATIVE: CASE EVENT DATE: 201710
